FAERS Safety Report 7623708-3 (Version None)
Quarter: 2011Q3

REPORT INFORMATION
  Report Type: 
  Country: None (occurrence: None)
  Receive Date: 20110720
  Receipt Date: 20110628
  Transmission Date: 20111222
  Serious: Yes (Hospitalization)
  Sender: FDA-Public Use
  Company Number: US-GLAXOSMITHKLINE-A0903719A

PATIENT
  Age: 59 Year
  Sex: Female
  Weight: 89.5 kg

DRUGS (8)
  1. CARVEDILOL [Concomitant]
  2. JANUVIA [Concomitant]
  3. ENALAPRIL MALEATE [Concomitant]
  4. ACTOS [Concomitant]
  5. GLIPIZIDE [Concomitant]
  6. AVANDAMET [Suspect]
     Indication: DIABETES MELLITUS
     Route: 048
     Dates: start: 20050101, end: 20070101
  7. SIMVASTATIN [Concomitant]
  8. AVANDIA [Suspect]
     Indication: TYPE 2 DIABETES MELLITUS
     Dosage: 4MG PER DAY
     Route: 048
     Dates: end: 20050101

REACTIONS (13)
  - BLOOD CHOLESTEROL INCREASED [None]
  - HYPERPHAGIA [None]
  - SUICIDAL IDEATION [None]
  - FATIGUE [None]
  - DEPRESSION [None]
  - CARDIOMEGALY [None]
  - ABDOMINAL DISTENSION [None]
  - CARDIAC DISORDER [None]
  - GENERAL PHYSICAL HEALTH DETERIORATION [None]
  - EXERCISE TOLERANCE DECREASED [None]
  - HYPERTENSION [None]
  - BACK PAIN [None]
  - ASTHENIA [None]
